FAERS Safety Report 4777677-4 (Version None)
Quarter: 2005Q3

REPORT INFORMATION
  Report Type: 
  Country: None (occurrence: None)
  Receive Date: 20050921
  Receipt Date: 20050831
  Transmission Date: 20060218
  Serious: Yes (Death)
  Sender: FDA-Public Use
  Company Number: USA0509107070

PATIENT
  Age: 82 Year
  Sex: Female

DRUGS (1)
  1. HUMATROPE [Suspect]
     Dosage: 0.1 MG

REACTIONS (1)
  - DEATH [None]
